FAERS Safety Report 7739937-4 (Version None)
Quarter: 2011Q3

REPORT INFORMATION
  Report Type: 
  Country: None (occurrence: None)
  Receive Date: 20110909
  Receipt Date: 20110908
  Transmission Date: 20111222
  Serious: Yes (Death, Hospitalization)
  Sender: FDA-Public Use
  Company Number: PHHY2011US68586

PATIENT
  Sex: Male
  Weight: 65.76 kg

DRUGS (1)
  1. EXJADE [Suspect]
     Indication: ACUTE LYMPHOCYTIC LEUKAEMIA
     Dosage: 1000 MG, DAILY
     Route: 048
     Dates: start: 20110415

REACTIONS (6)
  - ABDOMINAL DISCOMFORT [None]
  - DEATH [None]
  - RESPIRATORY DISORDER [None]
  - NERVOUS SYSTEM DISORDER [None]
  - SINUSITIS [None]
  - GRAFT VERSUS HOST DISEASE [None]
